FAERS Safety Report 24925291 (Version 1)
Quarter: 2025Q1

REPORT INFORMATION
  Report Type: Report from Study
  Country: US (occurrence: US)
  Receive Date: 20250204
  Receipt Date: 20250204
  Transmission Date: 20250409
  Serious: No
  Sender: EXELIXIS
  Company Number: US-EXELIXIS-CABO-24076615

PATIENT
  Age: 70 Year
  Sex: Male
  Weight: 135.88 kg

DRUGS (3)
  1. CABOMETYX [Suspect]
     Active Substance: CABOZANTINIB S-MALATE
     Indication: Renal cancer
     Dosage: 40 MG, QD
     Route: 048
  2. ORGOVYX [Suspect]
     Active Substance: RELUGOLIX
     Indication: Renal cancer
     Dosage: 120 MG, QD
     Route: 048
     Dates: start: 20240408
  3. GABAPENTIN [Concomitant]
     Active Substance: GABAPENTIN
     Dosage: 100 MG, QD

REACTIONS (3)
  - Mouth ulceration [Unknown]
  - Muscular weakness [Unknown]
  - Ageusia [Unknown]

NARRATIVE: CASE EVENT DATE: 20240401
